FAERS Safety Report 9282151 (Version 1)
Quarter: 2013Q2

REPORT INFORMATION
  Report Type: Spontaneous
  Country: US (occurrence: None)
  Receive Date: 20130508
  Receipt Date: 20130508
  Transmission Date: 20140414
  Serious: Yes (Hospitalization)
  Sender: FDA-Public Use
  Company Number: None

PATIENT
  Age: 48 Year
  Sex: Female
  Weight: 73.2 kg

DRUGS (7)
  1. PRAVASTATIN [Suspect]
     Route: 048
     Dates: start: 20110225, end: 20110307
  2. ACYCLOVIR [Concomitant]
  3. AMLODIPINE [Concomitant]
  4. CALCIUM CARBANATE [Concomitant]
  5. DOCUSATE [Concomitant]
  6. FEXOFENADINE [Concomitant]
  7. FLUTICOSONE [Concomitant]

REACTIONS (6)
  - Malaise [None]
  - Arthralgia [None]
  - Asthenia [None]
  - Serum sickness [None]
  - Alanine aminotransferase increased [None]
  - Aspartate aminotransferase increased [None]
